FAERS Safety Report 5033256-5 (Version None)
Quarter: 2006Q2

REPORT INFORMATION
  Report Type: 
  Country: None (occurrence: None)
  Receive Date: 20060620
  Receipt Date: 20060602
  Transmission Date: 20061013
  Serious: Yes (Hospitalization, Disabling)
  Sender: FDA-Public Use
  Company Number: 385658

PATIENT
  Age: 34 Year
  Sex: Female
  Weight: 65.8 kg

DRUGS (11)
  1. ACCUTANE [Suspect]
     Indication: ACNE CYSTIC
     Dosage: ORAL
     Route: 048
     Dates: start: 19870120, end: 19980615
  2. BIRTH CONTROL PILLS (ORAL CONTRACEPTIVE NOS) [Concomitant]
  3. ELDOQUIN (HYDROQUINONE) [Concomitant]
  4. ERYTHROMYCIN [Concomitant]
  5. SULFACET-R (SULFACETAMIDE SODIUM/TITANIUM DIOXIDE/ZINC OXIDE) [Concomitant]
  6. CLEOCIN T [Concomitant]
  7. MINOCIN (MINOCYCLINE HYDROCHLORIDE) [Concomitant]
  8. ERYTHROMYCIN [Concomitant]
  9. BENZAMYCIN (BENZOYL PEROXIDE/ERYTHROMYCIN) [Concomitant]
  10. RETIN-A (TRETINOIN) [Concomitant]
  11. BENZACLIN (BENZOYL PEROXIDE/CLINDAMYCIN) [Concomitant]

REACTIONS (105)
  - ABDOMINAL STRANGULATED HERNIA [None]
  - ABSCESS LIMB [None]
  - ALOPECIA [None]
  - ANAEMIA [None]
  - ANOREXIA [None]
  - ANXIETY [None]
  - APHTHOUS STOMATITIS [None]
  - ARTHRALGIA [None]
  - ASTHENIA [None]
  - BACK INJURY [None]
  - BRONCHITIS [None]
  - BUTTOCK PAIN [None]
  - CERVICITIS [None]
  - CHEST PAIN [None]
  - COLITIS PSEUDOMEMBRANOUS [None]
  - COLITIS ULCERATIVE [None]
  - CONSTIPATION [None]
  - CONVULSION [None]
  - CROHN'S DISEASE [None]
  - DEHYDRATION [None]
  - DEPRESSION [None]
  - DIFFERENTIAL WHITE BLOOD CELL COUNT ABNORMAL [None]
  - DIZZINESS [None]
  - DRUG HYPERSENSITIVITY [None]
  - DUODENAL ULCER [None]
  - ECCHYMOSIS [None]
  - EPISCLERITIS [None]
  - ERUCTATION [None]
  - EYE HAEMORRHAGE [None]
  - EYE PAIN [None]
  - FEMALE GENITAL TRACT FISTULA [None]
  - FIBROADENOMA [None]
  - FUNGAL INFECTION [None]
  - FURUNCLE [None]
  - GALACTORRHOEA [None]
  - GASTROINTESTINAL DISORDER [None]
  - GASTROINTESTINAL STOMA COMPLICATION [None]
  - GENERAL PHYSICAL HEALTH DETERIORATION [None]
  - GENITAL DISCHARGE [None]
  - GOITRE [None]
  - HAEMORRHOIDAL HAEMORRHAGE [None]
  - HAEMORRHOIDS [None]
  - HELICOBACTER GASTRITIS [None]
  - HYPERCOAGULATION [None]
  - HYPERGLYCAEMIA [None]
  - HYPERLIPIDAEMIA [None]
  - HYPERTENSION [None]
  - HYPERTROPHIC SCAR [None]
  - HYPOGLYCAEMIA [None]
  - HYPOKALAEMIA [None]
  - HYPOMAGNESAEMIA [None]
  - HYPONATRAEMIA [None]
  - HYPOPHOSPHATAEMIA [None]
  - HYPOVITAMINOSIS [None]
  - ILEUS [None]
  - INCONTINENCE [None]
  - INFLAMMATORY BOWEL DISEASE [None]
  - INFLUENZA LIKE ILLNESS [None]
  - INJURY [None]
  - INSOMNIA [None]
  - INTESTINAL HAEMORRHAGE [None]
  - INTESTINAL OBSTRUCTION [None]
  - INTRA-UTERINE CONTRACEPTIVE DEVICE [None]
  - IRON DEFICIENCY [None]
  - JUGULAR VEIN THROMBOSIS [None]
  - LETHARGY [None]
  - LEUKOCYTOSIS [None]
  - LEUKOPENIA [None]
  - LIVER DISORDER [None]
  - LOWER GASTROINTESTINAL HAEMORRHAGE [None]
  - MALAISE [None]
  - MALNUTRITION [None]
  - MENORRHAGIA [None]
  - MULTI-ORGAN DISORDER [None]
  - NAIL DISORDER [None]
  - NECK PAIN [None]
  - NERVE COMPRESSION [None]
  - OEDEMA PERIPHERAL [None]
  - OESOPHAGITIS [None]
  - ORAL CANDIDIASIS [None]
  - PAIN [None]
  - PALPITATIONS [None]
  - PHARYNGOLARYNGEAL PAIN [None]
  - PHLEBITIS [None]
  - PITYRIASIS ROSEA [None]
  - PROCEDURAL COMPLICATION [None]
  - PROCTITIS ULCERATIVE [None]
  - PULMONARY EMBOLISM [None]
  - PYREXIA [None]
  - RASH [None]
  - RECTAL HAEMORRHAGE [None]
  - RENAL FAILURE [None]
  - SACRAL PAIN [None]
  - SINUSITIS [None]
  - STRESS AT WORK [None]
  - SYNCOPE [None]
  - TACHYCARDIA [None]
  - THROMBOPHLEBITIS SUPERFICIAL [None]
  - THROMBOSIS [None]
  - THYROID GLAND SCAN ABNORMAL [None]
  - UTERINE LEIOMYOMA [None]
  - UTERINE POLYP [None]
  - VAGINAL DISORDER [None]
  - VULVOVAGINAL MYCOTIC INFECTION [None]
  - WEIGHT DECREASED [None]
